FAERS Safety Report 15662763 (Version 4)
Quarter: 2020Q1

REPORT INFORMATION
  Report Type: Spontaneous
  Country: US (occurrence: US)
  Receive Date: 20181127
  Receipt Date: 20200102
  Transmission Date: 20200409
  Serious: Yes (Other)
  Sender: FDA-Public Use
  Company Number: US-SA-2018SA171159

PATIENT
  Age: 67 Year
  Sex: Female
  Weight: 68.04 kg

DRUGS (9)
  1. DOCOSAHEXANOIC ACID [Concomitant]
     Active Substance: DOCONEXENT
     Dosage: UNK UNK, UNK
  2. FLUOXETINE [Concomitant]
     Active Substance: FLUOXETINE HYDROCHLORIDE
     Dosage: UNK UNK, UNK
  3. CLONAZEPAM. [Concomitant]
     Active Substance: CLONAZEPAM
     Dosage: UNK UNK, UNK
  4. MELOXICAM. [Concomitant]
     Active Substance: MELOXICAM
     Dosage: UNK UNK, UNK
  5. TAXOTERE [Suspect]
     Active Substance: DOCETAXEL
     Indication: BREAST CANCER FEMALE
     Dosage: 75 MG, Q3W
     Route: 042
     Dates: start: 20130925, end: 20130925
  6. MECLIZINE [Concomitant]
     Active Substance: MECLIZINE HYDROCHLORIDE
     Dosage: UNK UNK, UNK
  7. LORATADINE. [Concomitant]
     Active Substance: LORATADINE
     Dosage: UNK UNK, UNK
  8. NEOSAR [Concomitant]
     Active Substance: CYCLOPHOSPHAMIDE
     Indication: BREAST CANCER FEMALE
     Dosage: UNK UNK, UNK
  9. CYTOXAN [Concomitant]
     Active Substance: CYCLOPHOSPHAMIDE
     Dosage: UNK

REACTIONS (2)
  - Alopecia [Recovering/Resolving]
  - Psychological trauma [Unknown]

NARRATIVE: CASE EVENT DATE: 20131001
